FAERS Safety Report 9178169 (Version 1)
Quarter: 2013Q1

REPORT INFORMATION
  Report Type: Spontaneous
  Country: US (occurrence: US)
  Receive Date: 20130321
  Receipt Date: 20130321
  Transmission Date: 20140127
  Serious: Yes (Hospitalization, Other)
  Sender: FDA-Public Use
  Company Number: US-ASTRAZENECA-2013SE16739

PATIENT
  Sex: 0

DRUGS (2)
  1. ENTOCORT EC [Suspect]
     Route: 048
  2. SOLUMEDROL [Concomitant]

REACTIONS (1)
  - Crohn^s disease [Unknown]
